FAERS Safety Report 7693188-0 (Version None)
Quarter: 2011Q3

REPORT INFORMATION
  Report Type: 
  Country: None (occurrence: None)
  Receive Date: 20110819
  Receipt Date: 20110815
  Transmission Date: 20111222
  Serious: Yes (Hospitalization)
  Sender: FDA-Public Use
  Company Number: US-BAYER-201042059NA

PATIENT
  Age: 16 Year
  Sex: Female
  Weight: 79.365 kg

DRUGS (1)
  1. YASMIN [Suspect]
     Indication: PRODUCT USED FOR UNKNOWN INDICATION
     Dosage: UNK
     Route: 048
     Dates: start: 20050501, end: 20060630

REACTIONS (5)
  - GALLBLADDER PAIN [None]
  - BACK PAIN [None]
  - GALLBLADDER DISORDER [None]
  - PANCREATITIS [None]
  - MUSCLE SPASMS [None]
